FAERS Safety Report 12369042 (Version 1)
Quarter: 2016Q2

REPORT INFORMATION
  Report Type: Spontaneous
  Country: IT (occurrence: IT)
  Receive Date: 20160513
  Receipt Date: 20160513
  Transmission Date: 20160815
  Serious: Yes (Other)
  Sender: FDA-Public Use
  Company Number: IT-AUROBINDO-AUR-APL-2016-05799

PATIENT
  Age: 44 Year
  Sex: Female

DRUGS (1)
  1. OLANZAPINE 10MG [Suspect]
     Active Substance: OLANZAPINE
     Indication: BIPOLAR DISORDER
     Dosage: 10 MG, DAILY
     Route: 048
     Dates: start: 20160101

REACTIONS (1)
  - Metabolic syndrome [Recovered/Resolved]

NARRATIVE: CASE EVENT DATE: 20160125
